FAERS Safety Report 9320297 (Version 1)
Quarter: 2013Q2

REPORT INFORMATION
  Report Type: Report from Study
  Country: US (occurrence: US)
  Receive Date: 20130530
  Receipt Date: 20130530
  Transmission Date: 20140414
  Serious: Yes (Other)
  Sender: FDA-Public Use
  Company Number: US-US-EMD SERONO, INC.-7213455

PATIENT
  Age: 0 Day
  Sex: Female
  Weight: 2 kg

DRUGS (1)
  1. REBIF [Suspect]
     Indication: MULTIPLE SCLEROSIS
     Route: 064

REACTIONS (5)
  - Benign hydatidiform mole [Unknown]
  - Umbilical cord around neck [Unknown]
  - Premature baby [Unknown]
  - Normal newborn [Recovered/Resolved]
  - Foetal exposure during pregnancy [Recovered/Resolved]
